FAERS Safety Report 9505794 (Version 1)
Quarter: 2013Q1

REPORT INFORMATION
  Report Type: Spontaneous
  Country: DE (occurrence: None)
  Receive Date: 20130225
  Receipt Date: 20130225
  Transmission Date: 20140127
  Serious: Yes (Hospitalization)
  Sender: FDA-Public Use
  Company Number: 2012-641

PATIENT
  Age: 70 Year
  Sex: Female

DRUGS (1)
  1. PRIALT (ZICONOTIDE) INTRATHECAL INFUSION [Suspect]
     Dosage: ONCE AN HR
     Route: 037
     Dates: start: 20070524, end: 20070525

REACTIONS (4)
  - Tremor [None]
  - Gait disturbance [None]
  - Dry mouth [None]
  - Dizziness [None]
